FAERS Safety Report 25773214 (Version 1)
Quarter: 2025Q3

REPORT INFORMATION
  Report Type: Spontaneous
  Country: US (occurrence: US)
  Receive Date: 20250908
  Receipt Date: 20250908
  Transmission Date: 20251021
  Serious: No
  Sender: MYLAN
  Company Number: US-MYLANLABS-2025M1072621

PATIENT
  Age: 55 Year
  Sex: Female

DRUGS (1)
  1. BREYNA [Suspect]
     Active Substance: BUDESONIDE\FORMOTEROL FUMARATE
     Indication: Product used for unknown indication
     Dosage: 160 PER 9 MICROGRAM, BID (2 SPRAYS IN THE MORNING AND 2 SPRAYS IN THE NIGHT)
     Dates: start: 20250702

REACTIONS (4)
  - Stomatitis [Unknown]
  - Wrong technique in product usage process [Unknown]
  - Device issue [Unknown]
  - Product taste abnormal [Unknown]

NARRATIVE: CASE EVENT DATE: 20250822
